FAERS Safety Report 5673250-4 (Version None)
Quarter: 2008Q1

REPORT INFORMATION
  Report Type: 
  Country: None (occurrence: None)
  Receive Date: 20080317
  Receipt Date: 20080308
  Transmission Date: 20080703
  Serious: Yes (Life-Threatening, Hospitalization, Other)
  Sender: FDA-Public Use
  Company Number: 2008AP000618

PATIENT
  Age: 16 Year
  Sex: Male

DRUGS (2)
  1. BUPROPION HCL [Suspect]
     Indication: DEPRESSION
     Dosage: 100 MG;BID;PO
     Route: 048
  2. ROPIVACAINE (4 MG/KG) [Suspect]
     Indication: ANAESTHESIA
     Dosage: 300 MG; IV
     Route: 042

REACTIONS (3)
  - DRUG INTERACTION [None]
  - GRAND MAL CONVULSION [None]
  - MENTAL STATUS CHANGES [None]
